FAERS Safety Report 18620324 (Version 1)
Quarter: 2020Q4

REPORT INFORMATION
  Report Type: Spontaneous
  Country: US (occurrence: US)
  Receive Date: 20201215
  Receipt Date: 20201215
  Transmission Date: 20210114
  Serious: No
  Sender: FDA-Public Use
  Company Number: US-BAYER-2020-271608

PATIENT
  Age: 2 Year
  Sex: Male

DRUGS (2)
  1. CLARITIN [Suspect]
     Active Substance: LORATADINE
     Dosage: 1 DF, QD
     Route: 048
  2. CLARITIN [Suspect]
     Active Substance: LORATADINE
     Dosage: 2 DF, QD
     Route: 048
     Dates: start: 20201208, end: 20201208

REACTIONS (1)
  - Accidental exposure to product by child [None]

NARRATIVE: CASE EVENT DATE: 20201208
